FAERS Safety Report 8322151-1 (Version None)
Quarter: 2012Q2

REPORT INFORMATION
  Report Type: 
  Country: None (occurrence: None)
  Receive Date: 20120430
  Receipt Date: 20091229
  Transmission Date: 20120825
  Serious: No
  Sender: FDA-Public Use
  Company Number: US-TEVA-2009029899

PATIENT
  Sex: Female
  Weight: 81.72 kg

DRUGS (3)
  1. NUVIGIL [Suspect]
     Indication: HYPERSOMNIA
     Dosage: 150 MILLIGRAM;
     Route: 048
     Dates: start: 20091215, end: 20091221
  2. NUVIGIL [Suspect]
     Dosage: 250 MILLIGRAM;
     Route: 048
     Dates: start: 20091201
  3. FUROSEMIDE [Concomitant]
     Indication: DIURETIC THERAPY
     Dosage: 20 MILLIGRAM;
     Route: 048
     Dates: start: 20080101

REACTIONS (1)
  - DRUG INEFFECTIVE FOR UNAPPROVED INDICATION [None]
